FAERS Safety Report 8110538-1 (Version None)
Quarter: 2012Q1

REPORT INFORMATION
  Report Type: 
  Country: None (occurrence: None)
  Receive Date: 20120203
  Receipt Date: 20120123
  Transmission Date: 20120608
  Serious: Yes (Death, Life-Threatening, Other)
  Sender: FDA-Public Use
  Company Number: FR-BRISTOL-MYERS SQUIBB COMPANY-16361925

PATIENT
  Age: 50 Year
  Sex: Female

DRUGS (2)
  1. CARBOPLATIN [Suspect]
     Indication: MALIGNANT PERITONEAL NEOPLASM
  2. PACLITAXEL [Suspect]
     Indication: MALIGNANT PERITONEAL NEOPLASM

REACTIONS (5)
  - MULTI-ORGAN FAILURE [None]
  - LACTIC ACIDOSIS [None]
  - NEUROTOXICITY [None]
  - ACQUIRED MITOCHONDRIAL DNA DELETION [None]
  - NEOPLASM MALIGNANT [None]
